FAERS Safety Report 4774782-3 (Version None)
Quarter: 2005Q3

REPORT INFORMATION
  Report Type: 
  Country: None (occurrence: None)
  Receive Date: 20050919
  Receipt Date: 20050913
  Transmission Date: 20060218
  Serious: Yes (Death)
  Sender: FDA-Public Use
  Company Number: 2005-BP-16050RO

PATIENT
  Age: 29 Year
  Sex: Female
  Weight: 68 kg

DRUGS (2)
  1. METHADONE HCL [Suspect]
     Indication: DRUG ABUSER
     Dosage: PO
     Route: 048
  2. METHADONE HCL [Suspect]
     Indication: PROPHYLAXIS
     Dosage: PO
     Route: 048

REACTIONS (2)
  - INTENTIONAL MISUSE [None]
  - OVERDOSE [None]
